FAERS Safety Report 12188540 (Version 3)
Quarter: 2016Q3

REPORT INFORMATION
  Report Type: Spontaneous
  Country: ZA (occurrence: ZA)
  Receive Date: 20160317
  Receipt Date: 20160725
  Transmission Date: 20161109
  Serious: Yes (Death, Hospitalization)
  Sender: FDA-Public Use
  Company Number: ZA-BAYER-2016-052847

PATIENT
  Age: 57 Year
  Sex: Male

DRUGS (2)
  1. STIVARGA [Suspect]
     Active Substance: REGORAFENIB
     Indication: COLORECTAL CANCER METASTATIC
     Dosage: 160 MG, QD
     Route: 048
     Dates: end: 20160212
  2. STIVARGA [Suspect]
     Active Substance: REGORAFENIB
     Indication: COLORECTAL CANCER METASTATIC
     Dosage: UNK

REACTIONS (6)
  - Confusional state [None]
  - Metastases to lung [Fatal]
  - Oedema [None]
  - Metastases to lymph nodes [Fatal]
  - Metastases to liver [Fatal]
  - Dyspnoea [None]

NARRATIVE: CASE EVENT DATE: 20150730
